FAERS Safety Report 4791995-5 (Version None)
Quarter: 2005Q4

REPORT INFORMATION
  Report Type: 
  Country: None (occurrence: None)
  Receive Date: 20051006
  Receipt Date: 20050919
  Transmission Date: 20060501
  Serious: Yes (Death)
  Sender: FDA-Public Use
  Company Number: PAR_0323_2005

PATIENT
  Age: 49 Year
  Sex: Female

DRUGS (1)
  1. VALPROIC ACID [Suspect]
     Dosage: 20000 MG UNK PO
     Route: 048

REACTIONS (12)
  - AMMONIA INCREASED [None]
  - BLOOD PH DECREASED [None]
  - COMA [None]
  - COMPLETED SUICIDE [None]
  - COORDINATION ABNORMAL [None]
  - CORNEAL REFLEX DECREASED [None]
  - GENERAL PHYSICAL HEALTH DETERIORATION [None]
  - HYPOTENSION [None]
  - ILEUS [None]
  - OVERDOSE [None]
  - PO2 DECREASED [None]
  - PUPIL FIXED [None]
